FAERS Safety Report 12144036 (Version 6)
Quarter: 2016Q4

REPORT INFORMATION
  Report Type: Report from Study
  Country: JP (occurrence: JP)
  Receive Date: 20160304
  Receipt Date: 20161212
  Transmission Date: 20170207
  Serious: No
  Sender: FDA-Public Use
  Company Number: JP-BIOVITRUM-2015JP0342

PATIENT
  Age: 5 Month
  Sex: Male
  Weight: 6 kg

DRUGS (10)
  1. URSO [Concomitant]
     Active Substance: URSODIOL
  2. JUVELA [Concomitant]
     Active Substance: .ALPHA.-TOCOPHEROL\RETINOL
  3. CRAVIT [Concomitant]
     Active Substance: LEVOFLOXACIN
  4. ORFADIN [Suspect]
     Active Substance: NITISINONE
     Dates: start: 20161108
  5. PANVITAN [Concomitant]
  6. PHENOBAL [Concomitant]
     Active Substance: PHENOBARBITAL
  7. ORFADIN [Suspect]
     Active Substance: NITISINONE
     Indication: TYROSINAEMIA
     Dates: start: 20150110, end: 20150507
  8. ORFADIN [Suspect]
     Active Substance: NITISINONE
     Dates: start: 20150708, end: 20161107
  9. INCREMIN [Concomitant]
     Active Substance: FERRIC PYROPHOSPHATE
  10. ORFADIN [Suspect]
     Active Substance: NITISINONE
     Dates: start: 20150508, end: 20150707

REACTIONS (3)
  - Amino acid level increased [Not Recovered/Not Resolved]
  - Conjunctivitis [Recovering/Resolving]
  - Intentional product misuse [Unknown]

NARRATIVE: CASE EVENT DATE: 20150518
